FAERS Safety Report 7851703-8 (Version None)
Quarter: 2011Q4

REPORT INFORMATION
  Report Type: 
  Country: None (occurrence: None)
  Receive Date: 20111026
  Receipt Date: 20111019
  Transmission Date: 20120403
  Serious: Yes (Other)
  Sender: FDA-Public Use
  Company Number: JP-ROCHE-770691

PATIENT
  Sex: Male
  Weight: 74 kg

DRUGS (3)
  1. XELODA [Suspect]
     Indication: COLON CANCER RECURRENT
     Route: 048
     Dates: start: 20110107, end: 20110210
  2. AVASTIN [Suspect]
     Indication: COLON CANCER RECURRENT
     Route: 041
     Dates: start: 20110106, end: 20110127
  3. OXALIPLATIN [Concomitant]
     Route: 041
     Dates: start: 20110106, end: 20110127

REACTIONS (4)
  - GASTROINTESTINAL PERFORATION [None]
  - ABDOMINAL PAIN [None]
  - DIARRHOEA [None]
  - INFECTIOUS PERITONITIS [None]
